FAERS Safety Report 6681802-8 (Version None)
Quarter: 2010Q2

REPORT INFORMATION
  Report Type: 
  Country: None (occurrence: None)
  Receive Date: 20100414
  Receipt Date: 20090302
  Transmission Date: 20101027
  Serious: No
  Sender: FDA-Public Use
  Company Number: US-BAUSCH-2009BL000862

PATIENT
  Age: 65 Year
  Sex: Female

DRUGS (2)
  1. LEVOBUNOLOL HYDROCHLORIDE [Suspect]
     Indication: GLAUCOMA
     Route: 047
     Dates: start: 20090101, end: 20090301
  2. XALATAN /SWE/ [Concomitant]
     Indication: GLAUCOMA
     Route: 047

REACTIONS (1)
  - EYE IRRITATION [None]
